FAERS Safety Report 22128398 (Version 1)
Quarter: 2023Q1

REPORT INFORMATION
  Report Type: Spontaneous
  Country: US (occurrence: US)
  Receive Date: 20230323
  Receipt Date: 20230323
  Transmission Date: 20230417
  Serious: No
  Sender: FDA-Public Use
  Company Number: US-ALLERGAN-2305130US

PATIENT
  Sex: Female

DRUGS (4)
  1. VRAYLAR [Suspect]
     Active Substance: CARIPRAZINE
     Indication: Anxiety
     Dosage: 1.5 MG, QD
     Route: 048
  2. VRAYLAR [Suspect]
     Active Substance: CARIPRAZINE
     Indication: Bipolar disorder
     Dosage: 3 CAPSULE ONLY PER WEEK
     Route: 048
  3. VRAYLAR [Suspect]
     Active Substance: CARIPRAZINE
     Dosage: 1.5 MG, Q WEEK
     Route: 048
  4. Unspecified supplement medication [Concomitant]
     Indication: Product used for unknown indication
     Dosage: 10 MG

REACTIONS (7)
  - Dysstasia [Unknown]
  - Muscular weakness [Unknown]
  - Paraesthesia [Unknown]
  - Gait disturbance [Unknown]
  - Pain in extremity [Unknown]
  - Tremor [Unknown]
  - Off label use [Unknown]

NARRATIVE: CASE EVENT DATE: 20220101
